FAERS Safety Report 9910298 (Version 2)
Quarter: 2014Q2

REPORT INFORMATION
  Report Type: Spontaneous
  Country: US (occurrence: US)
  Receive Date: 20140219
  Receipt Date: 20140416
  Transmission Date: 20141212
  Serious: Yes (Other)
  Sender: FDA-Public Use
  Company Number: US-AMGEN-USASP2014011484

PATIENT
  Age: 44 Year
  Sex: Female
  Weight: 88.44 kg

DRUGS (3)
  1. ENBREL [Suspect]
     Indication: RHEUMATOID ARTHRITIS
     Dosage: 50 MG, QWK
     Route: 058
     Dates: start: 201402
  2. PREDNISONE [Concomitant]
     Dosage: UNK
  3. BUPROPION [Concomitant]
     Dosage: UNK

REACTIONS (12)
  - Pyrexia [Recovered/Resolved]
  - Sinus congestion [Not Recovered/Not Resolved]
  - Cough [Recovered/Resolved]
  - Headache [Recovered/Resolved]
  - Injection site reaction [Unknown]
  - Injection site erythema [Unknown]
  - Injection site pain [Unknown]
  - Injection site pruritus [Unknown]
  - Influenza [Unknown]
  - Injection site swelling [Unknown]
  - Injection site warmth [Unknown]
  - Viral infection [Recovered/Resolved]
